FAERS Safety Report 9530940 (Version 2)
Quarter: 2014Q2

REPORT INFORMATION
  Report Type: Spontaneous
  Country: US (occurrence: US)
  Receive Date: 20130918
  Receipt Date: 20140509
  Transmission Date: 20141212
  Serious: Yes (Other)
  Sender: FDA-Public Use
  Company Number: US-ASTRAZENECA-2013SE68526

PATIENT
  Age: 41 Year
  Sex: Female

DRUGS (6)
  1. SEROQUEL [Suspect]
     Indication: SCHIZOPHRENIA
     Route: 048
  2. SEROQUEL [Suspect]
     Indication: SCHIZOPHRENIA
     Route: 048
  3. SEROQUEL [Suspect]
     Indication: SCHIZOPHRENIA
     Dosage: GENERIC, 50 MG, TWO TIMES A DAY
     Route: 065
  4. SEROQUEL [Suspect]
     Indication: SCHIZOPHRENIA
     Dosage: GENERIC, 300 MG AT BEDTIME
     Route: 065
  5. TAMOXIFEN [Suspect]
     Route: 048
  6. RISPERDAL [Concomitant]

REACTIONS (12)
  - Road traffic accident [Unknown]
  - Breast cancer female [Unknown]
  - Drug intolerance [Unknown]
  - Adverse event [Unknown]
  - Impaired driving ability [Unknown]
  - Post-traumatic neck syndrome [Unknown]
  - Malaise [Unknown]
  - Hypoaesthesia [Unknown]
  - Vomiting [Unknown]
  - Dizziness [Unknown]
  - Wrong technique in drug usage process [Unknown]
  - Off label use [Unknown]
